FAERS Safety Report 21274384 (Version 3)
Quarter: 2024Q2

REPORT INFORMATION
  Report Type: Report from Study
  Country: CA (occurrence: CA)
  Receive Date: 20220831
  Receipt Date: 20240401
  Transmission Date: 20240716
  Serious: Yes (Hospitalization, Other)
  Sender: FDA-Public Use
  Company Number: CA-ABBVIE-22K-028-4521553-00

PATIENT
  Age: 78 Year
  Sex: Male

DRUGS (1)
  1. RINVOQ [Suspect]
     Active Substance: UPADACITINIB
     Indication: Dermatitis atopic
     Dosage: FORM STRENGTH: 15 MILLIGRAM
     Route: 048
     Dates: start: 20220609, end: 202208

REACTIONS (3)
  - Spinal operation [Unknown]
  - Post procedural complication [Unknown]
  - Epistaxis [Unknown]

NARRATIVE: CASE EVENT DATE: 20220801
